FAERS Safety Report 4685682-1 (Version None)
Quarter: 2005Q2

REPORT INFORMATION
  Report Type: 
  Country: None (occurrence: None)
  Receive Date: 20050608
  Receipt Date: 20050527
  Transmission Date: 20051028
  Serious: Yes (Disabling)
  Sender: FDA-Public Use
  Company Number: 2005-03-2007

PATIENT
  Age: 35 Year
  Sex: Male

DRUGS (2)
  1. PEG-INTRON [Suspect]
     Indication: HEPATITIS C
     Dosage: 100 UG QW SUBCUTANEOUS
     Route: 058
     Dates: start: 20040701, end: 20041101
  2. REBETOL [Suspect]
     Indication: HEPATITIS C
     Dosage: 1000 MG QD ORAL
     Route: 048
     Dates: start: 20040701, end: 20041101

REACTIONS (1)
  - NEURALGIC AMYOTROPHY [None]
